FAERS Safety Report 7583718-1 (Version None)
Quarter: 2011Q2

REPORT INFORMATION
  Report Type: 
  Country: None (occurrence: None)
  Receive Date: 20110630
  Receipt Date: 20110621
  Transmission Date: 20111010
  Serious: Yes (Hospitalization)
  Sender: FDA-Public Use
  Company Number: B0729246A

PATIENT

DRUGS (2)
  1. CAPECITABINE [Concomitant]
     Dosage: 1800MG PER DAY
     Route: 048
     Dates: start: 20100824, end: 20101019
  2. LAPATINIB [Suspect]
     Route: 048
     Dates: start: 20100824, end: 20101026

REACTIONS (1)
  - PULMONARY EMBOLISM [None]
